FAERS Safety Report 7211183-2 (Version None)
Quarter: 2011Q1

REPORT INFORMATION
  Report Type: 
  Country: None (occurrence: None)
  Receive Date: 20110105
  Receipt Date: 20101229
  Transmission Date: 20110831
  Serious: Yes (Life-Threatening, Hospitalization, Other)
  Sender: FDA-Public Use
  Company Number: US-MERCK-1012USA00197

PATIENT
  Age: 61 Year
  Sex: Female
  Weight: 68 kg

DRUGS (9)
  1. COZAAR [Suspect]
     Indication: BLOOD PRESSURE
     Route: 048
     Dates: start: 20101104, end: 20101112
  2. COZAAR [Suspect]
     Route: 048
     Dates: start: 20100805, end: 20101104
  3. COZAAR [Suspect]
     Route: 048
     Dates: start: 20100326, end: 20100101
  4. METOPROLOL [Concomitant]
     Route: 065
  5. COZAAR [Suspect]
     Route: 048
     Dates: start: 20100326, end: 20100101
  6. COZAAR [Suspect]
     Route: 048
     Dates: start: 20100101
  7. COZAAR [Suspect]
     Route: 048
     Dates: start: 20100805, end: 20101104
  8. SYNTHROID [Concomitant]
     Route: 065
  9. COZAAR [Suspect]
     Indication: HYPERTENSION
     Route: 048
     Dates: start: 20101104, end: 20101112

REACTIONS (6)
  - MUSCLE TIGHTNESS [None]
  - DRUG INEFFECTIVE [None]
  - DIZZINESS [None]
  - HEADACHE [None]
  - BLOOD PRESSURE INCREASED [None]
  - CHEST PAIN [None]
